FAERS Safety Report 25542283 (Version 1)
Quarter: 2025Q3

REPORT INFORMATION
  Report Type: Spontaneous
  Country: EU (occurrence: EU)
  Receive Date: 20250711
  Receipt Date: 20250711
  Transmission Date: 20251021
  Serious: Yes (Hospitalization, Other)
  Sender: BRISTOL-MYERS SQUIBB COMPANY
  Company Number: EU-ASTELLAS-2025-AER-034901

PATIENT
  Age: 24 Year
  Sex: Female

DRUGS (6)
  1. AZACITIDINE [Suspect]
     Active Substance: AZACITIDINE
     Indication: Acute myeloid leukaemia refractory
     Route: 058
  2. AZACITIDINE [Suspect]
     Active Substance: AZACITIDINE
     Indication: FLT3 gene mutation
  3. GILTERITINIB [Suspect]
     Active Substance: GILTERITINIB
     Indication: Acute myeloid leukaemia refractory
     Dosage: AS MONOTHERAPY
  4. GILTERITINIB [Suspect]
     Active Substance: GILTERITINIB
     Indication: FLT3 gene mutation
     Dosage: COMBINED WITH AZACITIDINE, VENETOCLA FOR 3 CYCLES
  5. VENETOCLAX [Suspect]
     Active Substance: VENETOCLAX
     Indication: Acute myeloid leukaemia refractory
     Route: 058
  6. VENETOCLAX [Suspect]
     Active Substance: VENETOCLAX
     Indication: FLT3 gene mutation

REACTIONS (2)
  - Respiratory failure [Unknown]
  - Abdominal abscess [Unknown]
